FAERS Safety Report 8695847 (Version 3)
Quarter: 2012Q4

REPORT INFORMATION
  Report Type: 
  Country: JP (occurrence: JP)
  Receive Date: 20120801
  Receipt Date: 20120829
  Transmission Date: 20130627
  Serious: Yes (Hospitalization)
  Sender: FDA-Public Use
  Company Number: JP-BRISTOL-MYERS SQUIBB COMPANY-16540726

PATIENT
  Age: 65 Year
  Sex: Female
  Weight: 35 kg

DRUGS (9)
  1. ORENCIA FOR INJ 250 MG/VIAL [Suspect]
     Indication: RHEUMATOID ARTHRITIS
     Dosage: 3 doses
IV
     Route: 041
     Dates: start: 20120215, end: 20120316
  2. PREDONINE [Concomitant]
     Indication: RHEUMATOID ARTHRITIS
     Route: 048
     Dates: start: 20120323
  3. LIPITOR [Concomitant]
     Indication: HYPERLIPIDAEMIA
     Route: 048
  4. TAKEPRON [Concomitant]
     Indication: GASTRIC MUCOSAL LESION
     Dosage: OD
     Route: 048
  5. GLUFAST [Concomitant]
     Indication: RHEUMATOID ARTHRITIS
     Route: 048
  6. ISCOTIN [Concomitant]
     Indication: RHEUMATOID ARTHRITIS
     Route: 048
     Dates: start: 20120118
  7. ULCERLMIN [Concomitant]
     Dosage: GRANULES
     Route: 048
  8. AZULFIDINE [Concomitant]
     Indication: RHEUMATOID ARTHRITIS
     Dosage: Azulfidine En
     Route: 048
  9. FOSAMAC [Concomitant]
     Indication: RHEUMATOID ARTHRITIS
     Route: 048

REACTIONS (1)
  - Sepsis [Recovered/Resolved]
